FAERS Safety Report 9783094 (Version 2)
Quarter: 2014Q2

REPORT INFORMATION
  Report Type: Spontaneous
  Country: US (occurrence: US)
  Receive Date: 20131226
  Receipt Date: 20140527
  Transmission Date: 20141212
  Serious: No
  Sender: FDA-Public Use
  Company Number: US-B.I. PHARMACEUTICALS,INC./RIDGEFIELD-2013-BI-42256BP

PATIENT
  Age: 52 Year
  Sex: Female
  Weight: 107 kg

DRUGS (6)
  1. COMBIVENT [Suspect]
     Indication: CHRONIC OBSTRUCTIVE PULMONARY DISEASE
     Dosage: STRENGTH: 20 MCG / 100 MCG
     Route: 055
     Dates: start: 201310
  2. ALBUTEROL SULFATE [Concomitant]
     Indication: CHRONIC OBSTRUCTIVE PULMONARY DISEASE
     Dosage: STRENGTH: 1.25 MG/3 ML
     Route: 055
     Dates: start: 2012
  3. OXYCODONE [Concomitant]
     Indication: ARTHRALGIA
     Route: 048
     Dates: start: 2011
  4. VALSARTAN HCTZ [Concomitant]
     Indication: HYPERTENSION
     Dosage: STRENGTH: 320-25 MG; DAILY DOSE: 320-25 MG
     Route: 048
     Dates: start: 2003
  5. OXYCONTIN [Concomitant]
     Indication: ARTHRALGIA
     Dosage: 60 MG
     Route: 048
     Dates: start: 201305
  6. PROTONIX [Concomitant]
     Indication: GASTROOESOPHAGEAL REFLUX DISEASE
     Dosage: 80 MG
     Route: 048
     Dates: start: 1998

REACTIONS (4)
  - Dyspnoea [Not Recovered/Not Resolved]
  - Incorrect drug administration rate [Not Recovered/Not Resolved]
  - Product quality issue [Not Recovered/Not Resolved]
  - Product quality issue [Not Recovered/Not Resolved]
